FAERS Safety Report 6011736-3 (Version None)
Quarter: 2008Q4

REPORT INFORMATION
  Report Type: 
  Country: None (occurrence: None)
  Receive Date: 20081218
  Receipt Date: 20080327
  Transmission Date: 20090506
  Serious: Yes (Other)
  Sender: FDA-Public Use
  Company Number: JP-ROCHE-538963

PATIENT
  Sex: Female
  Weight: 24 kg

DRUGS (6)
  1. TAMIFLU [Suspect]
     Dosage: DRUG NAME REPORTED: TAMIFLU DRY SYRUP 3%
     Route: 048
     Dates: start: 20071221, end: 20071221
  2. CLARITHROMYCIN [Concomitant]
     Dosage: FORM DRY SYRUP
     Route: 048
     Dates: start: 20071221
  3. ASVERIN [Concomitant]
     Route: 048
     Dates: start: 20071221
  4. BISOLVON [Concomitant]
     Dosage: FORM FINE GRANULE
     Route: 048
     Dates: start: 20071221
  5. PERIACTIN [Concomitant]
     Route: 048
     Dates: start: 20071221
  6. BIOFERMIN R [Concomitant]
     Route: 048
     Dates: start: 20071221

REACTIONS (3)
  - ABNORMAL BEHAVIOUR [None]
  - HALLUCINATION [None]
  - HALLUCINATION, AUDITORY [None]
